FAERS Safety Report 21499926 (Version 1)
Quarter: 2022Q4

REPORT INFORMATION
  Report Type: Spontaneous
  Country: JP (occurrence: JP)
  Receive Date: 20221024
  Receipt Date: 20221024
  Transmission Date: 20230113
  Serious: Yes (Hospitalization, Other)
  Sender: FDA-Public Use
  Company Number: JP-PFIZER INC-PV202200051292

PATIENT
  Age: 8 Decade
  Sex: Female
  Weight: 63.5 kg

DRUGS (1)
  1. LORBRENA [Suspect]
     Active Substance: LORLATINIB
     Indication: Non-small cell lung cancer
     Dosage: 100 MG, DAILY
     Dates: start: 20200527, end: 20210426

REACTIONS (5)
  - Dyslalia [Recovering/Resolving]
  - Hypoacusis [Unknown]
  - Diplopia [Unknown]
  - Pleural effusion [Unknown]
  - Neoplasm progression [Unknown]

NARRATIVE: CASE EVENT DATE: 20210426
